FAERS Safety Report 15715671 (Version 1)
Quarter: 2018Q4

REPORT INFORMATION
  Report Type: Spontaneous
  Country: US (occurrence: US)
  Receive Date: 20181212
  Receipt Date: 20181212
  Transmission Date: 20190205
  Serious: No
  Sender: FDA-Public Use
  Company Number: US-AQUA PHARMACEUTICALS-2018AQU000324

PATIENT

DRUGS (1)
  1. ACZONE [Suspect]
     Active Substance: DAPSONE
     Dosage: UNK UNK, QD

REACTIONS (1)
  - Drug ineffective [Unknown]
